FAERS Safety Report 5632890-9 (Version None)
Quarter: 2008Q1

REPORT INFORMATION
  Report Type: 
  Country: None (occurrence: None)
  Receive Date: 20080221
  Receipt Date: 20080212
  Transmission Date: 20080703
  Serious: Yes (Hospitalization)
  Sender: FDA-Public Use
  Company Number: FR-NOVOPROD-272156

PATIENT
  Age: 55 Year
  Sex: Female

DRUGS (11)
  1. ACTRAPID [Suspect]
     Indication: DIABETES MELLITUS
     Dosage: 16 IU, QD
  2. INSULATARD FLEXPEN [Suspect]
     Indication: DIABETES MELLITUS
     Dosage: 18 IU, QD
  3. DETENSIEL                          /00802601/ [Concomitant]
     Dosage: 10 MG, QD
  4. TOPALGIC                           /00599202/ [Concomitant]
  5. DAFALGAN                           /00020001/ [Concomitant]
  6. KARDEGIC                           /00002703/ [Concomitant]
  7. COVERSYL                           /00790701/ [Concomitant]
  8. INNOHEP                            /00889602/ [Concomitant]
  9. FONZYLANE [Concomitant]
  10. OGAST [Concomitant]
  11. TEMESTA                            /00273201/ [Concomitant]

REACTIONS (5)
  - FALL [None]
  - HYPOGLYCAEMIA [None]
  - MALAISE [None]
  - MITOCHONDRIAL CYTOPATHY [None]
  - MUSCLE SPASMS [None]
